FAERS Safety Report 7658985-6 (Version None)
Quarter: 2011Q3

REPORT INFORMATION
  Report Type: 
  Country: None (occurrence: None)
  Receive Date: 20110805
  Receipt Date: 20110725
  Transmission Date: 20111222
  Serious: Yes (Other)
  Sender: FDA-Public Use
  Company Number: GB-ELI_LILLY_AND_COMPANY-GB201106006953

PATIENT
  Sex: Female

DRUGS (2)
  1. ESTROGENIC SUBSTANCE [Concomitant]
     Dosage: UNK
     Dates: start: 20040101
  2. CYMBALTA [Suspect]
     Indication: DEPRESSION
     Dosage: UNK, UNKNOWN
     Route: 050
     Dates: start: 20110606

REACTIONS (4)
  - DYSPHAGIA [None]
  - MUSCULOSKELETAL DISCOMFORT [None]
  - HEAD DISCOMFORT [None]
  - LIP AND/OR ORAL CAVITY CANCER [None]
